FAERS Safety Report 18970338 (Version 1)
Quarter: 2021Q1

REPORT INFORMATION
  Report Type: Spontaneous
  Country: TR (occurrence: TR)
  Receive Date: 20210305
  Receipt Date: 20210305
  Transmission Date: 20210420
  Serious: Yes (Death, Other)
  Sender: FDA-Public Use
  Company Number: TR-BEH-2021128858

PATIENT
  Age: 39 Year
  Sex: Male

DRUGS (3)
  1. HUMAN IMMUNOGLOBULIN (INN) [Suspect]
     Active Substance: HUMAN IMMUNOGLOBULIN G
     Indication: GUILLAIN-BARRE SYNDROME
     Route: 042
  2. CYCLOPHOSPHAMIDE. [Suspect]
     Active Substance: CYCLOPHOSPHAMIDE
     Indication: SYSTEMIC LUPUS ERYTHEMATOSUS
     Dosage: 1000 MILLIGRAM, QMT
     Route: 065
  3. METHYLPREDNISOLONE. [Suspect]
     Active Substance: METHYLPREDNISOLONE
     Indication: SYSTEMIC LUPUS ERYTHEMATOSUS
     Dosage: 1000 MILLIGRAM, QD
     Route: 042

REACTIONS (6)
  - Therapy non-responder [Unknown]
  - Generalised tonic-clonic seizure [Fatal]
  - Hypertension [Fatal]
  - Posterior reversible encephalopathy syndrome [Fatal]
  - Headache [Fatal]
  - Vasogenic cerebral oedema [Fatal]
